FAERS Safety Report 5953219-2 (Version None)
Quarter: 2008Q4

REPORT INFORMATION
  Report Type: 
  Country: None (occurrence: None)
  Receive Date: 20081114
  Receipt Date: 20081105
  Transmission Date: 20090506
  Serious: Yes (Hospitalization)
  Sender: FDA-Public Use
  Company Number: PHHY2008CH26374

PATIENT
  Sex: Male

DRUGS (4)
  1. TASIGNA [Suspect]
     Indication: CHRONIC MYELOID LEUKAEMIA
     Dosage: 800 MG/DAY
     Dates: start: 20080401, end: 20081001
  2. SORTIS [Concomitant]
     Dosage: 80 MG/ DAY
  3. LISINOPRIL [Concomitant]
     Dosage: 10 MG/DAY
  4. ASPIRIN [Concomitant]
     Dosage: 100 MG/ DAY

REACTIONS (2)
  - ANGINA PECTORIS [None]
  - CHEST PAIN [None]
